FAERS Safety Report 8823172 (Version 2)
Quarter: 2012Q4

REPORT INFORMATION
  Report Type: Report from Study
  Country: FR (occurrence: FR)
  Receive Date: 20121003
  Receipt Date: 20121010
  Transmission Date: 20130627
  Serious: Yes (Death, Life-Threatening, Other)
  Sender: FDA-Public Use
  Company Number: FR-PFIZER INC-2012239829

PATIENT
  Age: 59 Year
  Sex: Male
  Weight: 108 kg

DRUGS (9)
  1. SOMAVERT [Suspect]
     Indication: ACROMEGALY
     Dosage: 40 mg, 2 injections a week
     Dates: start: 20050301
  2. COLECALCIFEROL [Concomitant]
     Indication: OSTEOPOROSIS
     Dosage: UNK
     Dates: start: 20100624
  3. NERISONE [Concomitant]
     Indication: PSORIASIS
     Dosage: UNK
     Route: 061
     Dates: start: 20050310
  4. RAMIPRIL [Concomitant]
     Indication: HYPERTENSION
     Dosage: UNK
     Dates: start: 20070924
  5. BISOPROLOL [Concomitant]
     Indication: HYPERTENSION
     Dosage: UNK
     Dates: start: 20051109
  6. TESTOSTERONE [Concomitant]
     Indication: BLOOD FOLLICLE STIMULATING HORMONE DECREASED
     Dosage: UNK
     Dates: start: 20050310
  7. TESTOSTERONE [Concomitant]
     Indication: BLOOD LUTEINISING HORMONE DECREASED
  8. LANREOTIDE [Concomitant]
     Dosage: UNK
     Dates: start: 199901, end: 20050301
  9. LANREOTIDE [Concomitant]
     Dosage: UNK
     Dates: start: 20111212

REACTIONS (2)
  - Cerebrovascular accident [Fatal]
  - Ruptured cerebral aneurysm [Fatal]
